FAERS Safety Report 7295218-7 (Version None)
Quarter: 2011Q1

REPORT INFORMATION
  Report Type: 
  Country: None (occurrence: None)
  Receive Date: 20110216
  Receipt Date: 20110119
  Transmission Date: 20110831
  Serious: No
  Sender: FDA-Public Use
  Company Number: A0900435A

PATIENT
  Sex: Male

DRUGS (1)
  1. VOTRIENT [Suspect]
     Dosage: 400MG TWICE PER DAY
     Route: 048
     Dates: start: 20101201

REACTIONS (15)
  - ABDOMINAL PAIN [None]
  - DYSGEUSIA [None]
  - DIARRHOEA [None]
  - NASOPHARYNGITIS [None]
  - JOINT INJURY [None]
  - IMPAIRED HEALING [None]
  - TREATMENT NONCOMPLIANCE [None]
  - DYSPEPSIA [None]
  - FLATULENCE [None]
  - ERUCTATION [None]
  - CONSTIPATION [None]
  - FALL [None]
  - HYPOAESTHESIA ORAL [None]
  - FAECES HARD [None]
  - CHANGE OF BOWEL HABIT [None]
